FAERS Safety Report 14478836 (Version 1)
Quarter: 2018Q1

REPORT INFORMATION
  Report Type: Spontaneous
  Country: FR (occurrence: FR)
  Receive Date: 20180202
  Receipt Date: 20180202
  Transmission Date: 20180509
  Serious: Yes (Other)
  Sender: FDA-Public Use
  Company Number: FR-ROCHE-2062105

PATIENT
  Age: 69 Year
  Sex: Female

DRUGS (4)
  1. DEPAKINE [Suspect]
     Active Substance: VALPROATE SODIUM
     Indication: DRUG ADMINISTRATION ERROR
     Dosage: DEPAKINE
     Route: 048
  2. RIVOTRIL [Suspect]
     Active Substance: CLONAZEPAM
     Indication: DRUG ADMINISTRATION ERROR
     Dosage: RIVOTRIL 2 MG
     Route: 048
  3. EPITOMAX [Suspect]
     Active Substance: TOPIRAMATE
     Indication: DRUG ADMINISTRATION ERROR
     Dosage: EPITOMAX 50 MG
     Route: 048
  4. INIPOMP [Suspect]
     Active Substance: PANTOPRAZOLE SODIUM
     Indication: DRUG ADMINISTRATION ERROR
     Dosage: INIPOMP 20 MG
     Route: 048

REACTIONS (2)
  - Sleep disorder [Recovered/Resolved]
  - Drug administration error [Unknown]

NARRATIVE: CASE EVENT DATE: 20171204
